FAERS Safety Report 7080582-4 (Version None)
Quarter: 2010Q4

REPORT INFORMATION
  Report Type: 
  Country: None (occurrence: None)
  Receive Date: 20101025
  Receipt Date: 20101013
  Transmission Date: 20110411
  Serious: Yes (Other)
  Sender: FDA-Public Use
  Company Number: 1000016816

PATIENT
  Age: 35 Year
  Sex: Male

DRUGS (2)
  1. LEXAPRO [Suspect]
     Indication: ANXIETY
     Dosage: 10 MG (10 MG, 1 IN 1 D), ORAL
     Route: 048
  2. ALCOHOL (ETHANOL) [Suspect]

REACTIONS (2)
  - BLOOD ALCOHOL INCREASED [None]
  - IMPAIRED DRIVING ABILITY [None]
